FAERS Safety Report 21978141 (Version 1)
Quarter: 2023Q1

REPORT INFORMATION
  Report Type: Report from Study
  Country: US (occurrence: US)
  Receive Date: 20230210
  Receipt Date: 20230210
  Transmission Date: 20230417
  Serious: Yes (Other)
  Sender: FDA-Public Use
  Company Number: US-GSKCCFUS-Case-01613916_AE-91153

PATIENT

DRUGS (1)
  1. BELIMUMAB [Suspect]
     Active Substance: BELIMUMAB
     Indication: Systemic lupus erythematosus
     Dosage: UNK
     Route: 058
     Dates: start: 202210

REACTIONS (17)
  - Omphalitis [Recovered/Resolved]
  - Thrombosis [Unknown]
  - Injection site pain [Not Recovered/Not Resolved]
  - Peripheral swelling [Unknown]
  - Chills [Unknown]
  - Hot flush [Unknown]
  - Night sweats [Unknown]
  - Condition aggravated [Unknown]
  - Dyspnoea [Unknown]
  - Chest pain [Unknown]
  - Arthralgia [Unknown]
  - Nausea [Recovered/Resolved]
  - Headache [Recovered/Resolved]
  - Lymphadenopathy [Unknown]
  - Bacterial infection [Unknown]
  - Inflammatory marker increased [Unknown]
  - Wrong technique in device usage process [Unknown]
